FAERS Safety Report 7356232-6 (Version None)
Quarter: 2011Q1

REPORT INFORMATION
  Report Type: 
  Country: None (occurrence: None)
  Receive Date: 20110316
  Receipt Date: 20110222
  Transmission Date: 20110831
  Serious: Yes (Hospitalization, Other)
  Sender: FDA-Public Use
  Company Number: US-BAYER-201027997NA

PATIENT
  Sex: Female
  Weight: 72.562 kg

DRUGS (1)
  1. YASMIN [Suspect]
     Indication: PREMENSTRUAL SYNDROME
     Dosage: UNK
     Dates: start: 20060101, end: 20091001

REACTIONS (6)
  - CHOLECYSTOSTOMY [None]
  - CHOLELITHIASIS [None]
  - GALLBLADDER DISORDER [None]
  - PAIN [None]
  - ABDOMINAL PAIN UPPER [None]
  - CHOLECYSTITIS [None]
